FAERS Safety Report 8147560-5 (Version None)
Quarter: 2012Q1

REPORT INFORMATION
  Report Type: 
  Country: None (occurrence: None)
  Receive Date: 20120218
  Receipt Date: 20110224
  Transmission Date: 20120608
  Serious: Yes (Other)
  Sender: FDA-Public Use
  Company Number: US-ALLERGAN-1102665US

PATIENT
  Age: 43 Year
  Sex: Male

DRUGS (1)
  1. BOTULINUM TOXIN TYPE A [Suspect]
     Indication: BACK PAIN
     Dosage: UNK
     Route: 030
     Dates: start: 20110101, end: 20110101

REACTIONS (9)
  - PAIN [None]
  - BURNING SENSATION [None]
  - ASTHENIA [None]
  - RHABDOMYOLYSIS [None]
  - MALAISE [None]
  - URINE OUTPUT DECREASED [None]
  - CHROMATURIA [None]
  - LETHARGY [None]
  - INFLUENZA LIKE ILLNESS [None]
